FAERS Safety Report 9556353 (Version 1)
Quarter: 2013Q3

REPORT INFORMATION
  Report Type: Spontaneous
  Country: DE (occurrence: DE)
  Receive Date: 20130926
  Receipt Date: 20130926
  Transmission Date: 20140515
  Serious: Yes (Hospitalization)
  Sender: FDA-Public Use
  Company Number: DE-CELGENEUS-062-21880-13092025

PATIENT
  Age: 66 Year
  Sex: Male

DRUGS (11)
  1. REVLIMID [Suspect]
     Indication: CHRONIC LYMPHOCYTIC LEUKAEMIA
     Route: 048
     Dates: start: 2009
  2. REVLIMID [Suspect]
     Route: 048
     Dates: start: 200911
  3. REVLIMID [Suspect]
     Route: 048
     Dates: start: 201303
  4. REVLIMID [Suspect]
     Route: 048
     Dates: start: 20130805
  5. REVLIMID [Suspect]
     Route: 048
     Dates: start: 201308
  6. RAMIPRIL [Concomitant]
     Indication: HYPERTENSION
     Dosage: 2.5 MILLIGRAM
     Route: 065
  7. DEXAMETHASONE [Concomitant]
     Indication: PRODUCT USED FOR UNKNOWN INDICATION
     Route: 065
     Dates: start: 200909
  8. DEXAMETHASONE [Concomitant]
     Route: 065
     Dates: start: 20130805
  9. DEXAMETHASONE [Concomitant]
     Dosage: DAY 1, 8, 9, 15, 16, 22, 23
     Route: 065
     Dates: start: 200909
  10. HYDROCHLOROTHIAZIDE [Concomitant]
     Indication: HYPERTENSION
     Dosage: 12.5 MILLIGRAM
     Route: 065
  11. UROREC [Concomitant]
     Indication: HYPERTENSION
     Dosage: 2 MILLIGRAM
     Route: 065

REACTIONS (11)
  - Ventricular extrasystoles [Unknown]
  - Hypotension [Unknown]
  - Dehydration [Unknown]
  - Pyrexia [Unknown]
  - Deep vein thrombosis [Unknown]
  - Renal failure acute [Unknown]
  - Urinary tract infection [Unknown]
  - Chronic lymphocytic leukaemia [Unknown]
  - Subcutaneous abscess [Unknown]
  - Pneumonia [Unknown]
  - Diarrhoea [Unknown]
